FAERS Safety Report 11865898 (Version 2)
Quarter: 2016Q2

REPORT INFORMATION
  Report Type: Report from Study
  Country: DE (occurrence: DE)
  Receive Date: 20151223
  Receipt Date: 20160406
  Transmission Date: 20160815
  Serious: Yes (Death)
  Sender: FDA-Public Use
  Company Number: DE-ABBVIE-15P-062-1525105-00

PATIENT
  Sex: Male

DRUGS (1)
  1. DUODOPA [Suspect]
     Active Substance: CARBIDOPA\LEVODOPA
     Indication: PARKINSON^S DISEASE
     Dosage: MD 8.0ML, CRD 2.8ML/H, ED 1.5ML
     Route: 050
     Dates: start: 20141119, end: 20151215

REACTIONS (4)
  - Epilepsy [Fatal]
  - Joint dislocation [Recovered/Resolved]
  - Subarachnoid haemorrhage [Fatal]
  - Fall [Fatal]
